FAERS Safety Report 8237004-7 (Version None)
Quarter: 2012Q1

REPORT INFORMATION
  Report Type: 
  Country: None (occurrence: None)
  Receive Date: 20120327
  Receipt Date: 20120321
  Transmission Date: 20120608
  Serious: Yes (Hospitalization)
  Sender: FDA-Public Use
  Company Number: PHEH2012US006477

PATIENT
  Age: 57 Year
  Sex: Female

DRUGS (1)
  1. VOLTAREN [Suspect]
     Dosage: 1 DF, PER DAY

REACTIONS (4)
  - STAPHYLOCOCCAL INFECTION [None]
  - COMA [None]
  - GRAND MAL CONVULSION [None]
  - OSTEOMYELITIS [None]
